FAERS Safety Report 12980089 (Version 2)
Quarter: 2016Q4

REPORT INFORMATION
  Report Type: Spontaneous
  Country: US (occurrence: US)
  Receive Date: 20161128
  Receipt Date: 20161228
  Transmission Date: 20170207
  Serious: Yes (Hospitalization)
  Sender: FDA-Public Use
  Company Number: US-SMITH AND NEPHEW, INC-2016SMT00998

PATIENT
  Age: 73 Year
  Sex: Female
  Weight: 113.38 kg

DRUGS (11)
  1. HUMALOG [Concomitant]
     Active Substance: INSULIN LISPRO
  2. REGRANEX [Suspect]
     Active Substance: BECAPLERMIN
     Indication: WOUND
     Dosage: UNK UNK, 3X/WEEK
     Route: 061
     Dates: start: 201610, end: 20161111
  3. VITAMIN B [Concomitant]
     Active Substance: VITAMIN B
  4. VITAMIN C [Concomitant]
     Active Substance: ASCORBIC ACID
  5. VITAMIN E [Concomitant]
     Active Substance: .ALPHA.-TOCOPHEROL
  6. LEVEMIR [Concomitant]
     Active Substance: INSULIN DETEMIR
  7. CALCIUM [Concomitant]
     Active Substance: CALCIUM
  8. GLUCOPHAGE [Concomitant]
     Active Substance: METFORMIN HYDROCHLORIDE
  9. GLIPIZIDE. [Concomitant]
     Active Substance: GLIPIZIDE
  10. SENIOR MULTIVITAMIN [Concomitant]
  11. DIGOXIN. [Concomitant]
     Active Substance: DIGOXIN

REACTIONS (6)
  - Wound infection [Recovering/Resolving]
  - Impaired healing [Not Recovered/Not Resolved]
  - Blister [Unknown]
  - Application site pain [Recovering/Resolving]
  - Application site erythema [Recovering/Resolving]
  - Inappropriate schedule of drug administration [Recovered/Resolved]

NARRATIVE: CASE EVENT DATE: 201610
